FAERS Safety Report 24356796 (Version 1)
Quarter: 2024Q3

REPORT INFORMATION
  Report Type: Other
  Country: US (occurrence: US)
  Receive Date: 20240924
  Receipt Date: 20240924
  Transmission Date: 20241017
  Serious: Yes (Other)
  Sender: FAGRON COMPOUNDING SERVICES D/B/A FAGRON STERILE SERVICES, WICHITA, KS
  Company Number: US-Fagron Sterile Services-2161955

PATIENT

DRUGS (1)
  1. CALCIUM CHLORIDE\LIDOCAINE\MAGNESIUM CHLORIDE\PHENYLEPHRINE\POTASSIUM [Suspect]
     Active Substance: CALCIUM CHLORIDE\LIDOCAINE\MAGNESIUM CHLORIDE\PHENYLEPHRINE\POTASSIUM CHLORIDE\SODIUM ACETATE\SODIUM
     Dates: start: 20240903

REACTIONS (1)
  - Adverse drug reaction [Unknown]

NARRATIVE: CASE EVENT DATE: 20240903
